FAERS Safety Report 24702612 (Version 1)
Quarter: 2024Q4

REPORT INFORMATION
  Report Type: Spontaneous
  Country: US (occurrence: US)
  Receive Date: 20241205
  Receipt Date: 20241205
  Transmission Date: 20250115
  Serious: No
  Sender: BIOGEN
  Company Number: US-BIOGEN-2024BI01292861

PATIENT
  Sex: Female

DRUGS (1)
  1. TYSABRI [Suspect]
     Active Substance: NATALIZUMAB
     Indication: Multiple sclerosis
     Dosage: START DATES WERE ALSO REPORTED AS 15-FEB-2017 TO 08-DEC-2021, 21-MAR-2023 TO 18-APR-2023, 11-SEP-...
     Route: 050
     Dates: start: 20160427, end: 20241106

REACTIONS (1)
  - Dyspnoea [Recovered/Resolved]
